FAERS Safety Report 6655413-4 (Version None)
Quarter: 2010Q1

REPORT INFORMATION
  Report Type: 
  Country: None (occurrence: None)
  Receive Date: 20100329
  Receipt Date: 20100224
  Transmission Date: 20100710
  Serious: No
  Sender: FDA-Public Use
  Company Number: US-BAYER-201012554BCC

PATIENT
  Age: 49 Year
  Sex: Female
  Weight: 78 kg

DRUGS (2)
  1. ALEVE [Suspect]
     Indication: HEADACHE
     Dosage: TOTAL DAILY DOSE: 220 MG  UNIT DOSE: 220 MG
     Route: 048
     Dates: start: 20100223
  2. ASTEPRO [Concomitant]
     Route: 065

REACTIONS (2)
  - HEADACHE [None]
  - WHEEZING [None]
